FAERS Safety Report 19826120 (Version 3)
Quarter: 2021Q4

REPORT INFORMATION
  Report Type: Spontaneous
  Country: US (occurrence: US)
  Receive Date: 20210914
  Receipt Date: 20211123
  Transmission Date: 20220303
  Serious: No
  Sender: FDA-Public Use
  Company Number: US-BIOVITRUM-2021US7973

PATIENT
  Age: 30 Year
  Sex: Male

DRUGS (2)
  1. KINERET [Suspect]
     Active Substance: ANAKINRA
     Indication: Multisystem inflammatory syndrome in children
     Route: 058
     Dates: start: 20210801
  2. KINERET [Suspect]
     Active Substance: ANAKINRA
     Route: 058

REACTIONS (6)
  - Contusion [Unknown]
  - Hyperaesthesia teeth [Unknown]
  - Injection site reaction [Unknown]
  - Injection site erythema [Unknown]
  - Injection site bruising [Unknown]
  - Off label use [Not Recovered/Not Resolved]

NARRATIVE: CASE EVENT DATE: 20210801
